FAERS Safety Report 22653364 (Version 1)
Quarter: 2023Q2

REPORT INFORMATION
  Report Type: Spontaneous
  Country: CN (occurrence: CN)
  Receive Date: 20230629
  Receipt Date: 20230629
  Transmission Date: 20230722
  Serious: Yes (Other)
  Sender: FDA-Public Use
  Company Number: None

PATIENT
  Age: 50 Year
  Sex: Female
  Weight: 50 kg

DRUGS (1)
  1. MANNITOL [Suspect]
     Active Substance: MANNITOL
     Indication: Post procedural swelling
     Dosage: 100 ML TWICE DAILY, DOSAGE FORM: INJECTION
     Route: 041
     Dates: start: 20230223, end: 20230226

REACTIONS (5)
  - Retinal microangiopathy [Not Recovered/Not Resolved]
  - Capillary disorder [Unknown]
  - Dry eye [Unknown]
  - Hypoaesthesia eye [Unknown]
  - Discomfort [Unknown]

NARRATIVE: CASE EVENT DATE: 20230223
